FAERS Safety Report 7960895-1 (Version None)
Quarter: 2011Q4

REPORT INFORMATION
  Report Type: 
  Country: None (occurrence: None)
  Receive Date: 20111121
  Receipt Date: 20111018
  Transmission Date: 20120403
  Serious: No
  Sender: FDA-Public Use
  Company Number: 1000024776

PATIENT
  Age: 68 Year
  Sex: Female

DRUGS (10)
  1. ASPIRIN [Concomitant]
  2. VIIBRYD [Suspect]
     Indication: DEPRESSION
     Dosage: 10 MG (10 MG, 1 IN 1 D), ORAL
     Route: 048
     Dates: start: 20110917, end: 20111001
  3. VIIBRYD [Suspect]
     Indication: DEPRESSION
     Dosage: 10 MG (10 MG, 1 IN 1 D), ORAL
     Route: 048
     Dates: start: 20110909, end: 20110915
  4. SYNTHROID (LEVOTHYROXINE SODIUM) (LEVOTHYROXINE SODIUM) [Concomitant]
  5. VIIBRYD [Suspect]
     Indication: DEPRESSION
     Dosage: 20 MG, (20 MG, 1 IN 1 D), ORAL
     Route: 048
     Dates: start: 20110916, end: 20110916
  6. BENICAR [Concomitant]
  7. XANAX [Concomitant]
  8. VENTOLIN HFA (SALBUTAMOL SULFATE) (SALBUTAMOL SULFATE) [Concomitant]
  9. VIIBRYD [Suspect]
     Indication: DEPRESSION
     Dosage: 5 MG (5 MG, 1 IN 1 D), ORAL
     Route: 048
     Dates: start: 20111011
  10. PLAVIX (CLOPIDOGREL BISULFATE) (CLOPIDOGREL BISULFATE) [Concomitant]

REACTIONS (6)
  - DIARRHOEA [None]
  - IRRITABILITY [None]
  - ANXIETY [None]
  - TACHYPHRENIA [None]
  - HEART RATE INCREASED [None]
  - PANIC ATTACK [None]
